FAERS Safety Report 4852240-5 (Version None)
Quarter: 2005Q4

REPORT INFORMATION
  Report Type: 
  Country: None (occurrence: None)
  Receive Date: 20051123
  Receipt Date: 20050920
  Transmission Date: 20060501
  Serious: Yes (Hospitalization)
  Sender: FDA-Public Use
  Company Number: US-JNJFOC-20050800150

PATIENT
  Age: 77 Year
  Sex: Female

DRUGS (2)
  1. LEVAQUIN [Suspect]
     Indication: INFECTION
     Dosage: INTRAVENOUS
     Route: 042
     Dates: start: 20050701, end: 20050701
  2. ACIPHEX [Suspect]
     Indication: DRUG USE FOR UNKNOWN INDICATION

REACTIONS (2)
  - BLOOD CREATININE INCREASED [None]
  - HYPERSENSITIVITY [None]
